FAERS Safety Report 8364576-4 (Version None)
Quarter: 2012Q2

REPORT INFORMATION
  Report Type: 
  Country: None (occurrence: None)
  Receive Date: 20120516
  Receipt Date: 20120504
  Transmission Date: 20120825
  Serious: Yes (Hospitalization, Other)
  Sender: FDA-Public Use
  Company Number: US-JNJFOC-20120509280

PATIENT
  Age: 34 Year
  Sex: Female

DRUGS (14)
  1. PHENERGAN [Suspect]
     Indication: MIGRAINE
     Route: 065
     Dates: start: 20120319
  2. TYLENOL (CAPLET) [Suspect]
     Route: 048
  3. HALCINONIDE [Concomitant]
     Indication: PSORIASIS
     Route: 061
  4. BENADRYL [Suspect]
     Indication: INJECTION RELATED REACTION
     Route: 065
     Dates: start: 20120319
  5. UNKNOWN MEDICATION [Suspect]
     Indication: MIGRAINE
     Route: 065
     Dates: start: 20120319
  6. TORADOL [Suspect]
     Indication: MIGRAINE
     Route: 065
     Dates: start: 20120319
  7. HUMIRA [Concomitant]
     Indication: PSORIASIS
     Route: 065
     Dates: start: 20120215, end: 20120319
  8. CLONAZEPAM [Concomitant]
     Indication: PRODUCT USED FOR UNKNOWN INDICATION
     Route: 061
  9. IMITREX [Suspect]
     Indication: MIGRAINE
     Route: 065
     Dates: start: 20120319
  10. PROTONIX [Concomitant]
     Indication: PRODUCT USED FOR UNKNOWN INDICATION
     Route: 065
  11. TYLENOL (CAPLET) [Suspect]
     Indication: MIGRAINE
     Route: 048
     Dates: start: 20120319
  12. TRIAMCINOLONE [Concomitant]
     Indication: PSORIASIS
     Route: 065
  13. TRIAMCINOLONE ACETONIDE [Concomitant]
     Indication: PSORIASIS
     Route: 061
  14. DIPHENHYDRAMINE HYDROCHLORIDE [Concomitant]
     Indication: PRODUCT USED FOR UNKNOWN INDICATION
     Route: 065

REACTIONS (4)
  - OFF LABEL USE [None]
  - MUSCLE SPASMS [None]
  - BLOOD PRESSURE INCREASED [None]
  - HYPERSENSITIVITY [None]
